APPROVED DRUG PRODUCT: VOQUEZNA DUAL PAK
Active Ingredient: AMOXICILLIN; VONOPRAZAN FUMARATE
Strength: 500MG;EQ 20MG BASE
Dosage Form/Route: CAPSULE, TABLET;ORAL
Application: N215153 | Product #001
Applicant: PHATHOM PHARMACEUTICALS INC
Approved: May 3, 2022 | RLD: Yes | RS: Yes | Type: RX

PATENTS:
Patent 9186411 | Expires: Aug 11, 2030
Patent 7977488 | Expires: Apr 10, 2030

EXCLUSIVITY:
Code: NCE | Date: May 3, 2027
Code: GAIN | Date: May 3, 2032